FAERS Safety Report 5715961-8 (Version None)
Quarter: 2008Q2

REPORT INFORMATION
  Report Type: 
  Country: None (occurrence: None)
  Receive Date: 20080424
  Receipt Date: 20080418
  Transmission Date: 20081010
  Serious: Yes (Hospitalization)
  Sender: FDA-Public Use
  Company Number: JP-ASTRAZENECA-2008AP02905

PATIENT
  Age: 76 Year
  Sex: Female

DRUGS (2)
  1. OMEPRAL INJECTION [Suspect]
     Indication: GASTRIC ULCER
     Dosage: 1 VIAL ONLY ON 15-APR-2008
     Route: 041
     Dates: start: 20080415, end: 20080417
  2. DIAZEPAM [Concomitant]
     Indication: ENDOSCOPY
     Route: 042
     Dates: start: 20080415

REACTIONS (2)
  - CONVULSION [None]
  - LOSS OF CONSCIOUSNESS [None]
